FAERS Safety Report 9434802 (Version 1)
Quarter: 2013Q3

REPORT INFORMATION
  Report Type: Spontaneous
  Country: US (occurrence: US)
  Receive Date: 20130801
  Receipt Date: 20130801
  Transmission Date: 20140515
  Serious: No
  Sender: FDA-Public Use
  Company Number: US-ROXANE LABORATORIES, INC.-2013-RO-01288RO

PATIENT
  Age: 87 Year
  Sex: Female

DRUGS (1)
  1. MORPHINE [Suspect]

REACTIONS (1)
  - Malaise [Unknown]
